FAERS Safety Report 16633394 (Version 1)
Quarter: 2019Q3

REPORT INFORMATION
  Report Type: Spontaneous
  Country: US (occurrence: US)
  Receive Date: 20190725
  Receipt Date: 20190725
  Transmission Date: 20191004
  Serious: No
  Sender: FDA-Public Use
  Company Number: US-BRACCO-2018US05884

PATIENT
  Age: 47 Year
  Sex: Female

DRUGS (1)
  1. IODOTOPE [Suspect]
     Active Substance: SODIUM IODIDE I-131
     Indication: BASEDOW^S DISEASE
     Dosage: 30.2 MCI, UNK
     Dates: start: 20161129, end: 20161129

REACTIONS (1)
  - Localised oedema [Recovered/Resolved]

NARRATIVE: CASE EVENT DATE: 20161201
